FAERS Safety Report 7177616-5 (Version None)
Quarter: 2010Q4

REPORT INFORMATION
  Report Type: 
  Country: None (occurrence: None)
  Receive Date: 20101220
  Receipt Date: 20101210
  Transmission Date: 20110411
  Serious: Yes (Other)
  Sender: FDA-Public Use
  Company Number: US-PURDUE-USA-2010-0058954

PATIENT
  Sex: Male

DRUGS (2)
  1. OXYCONTIN [Suspect]
     Indication: PAIN
     Dosage: 80 MG, TID
     Dates: start: 20101001
  2. PERCOCET [Concomitant]
     Indication: BREAKTHROUGH PAIN
     Dosage: UNK
     Dates: start: 20101201

REACTIONS (4)
  - BREAKTHROUGH PAIN [None]
  - DRUG INEFFECTIVE [None]
  - MEDICATION RESIDUE [None]
  - SUICIDAL IDEATION [None]
